FAERS Safety Report 6707563-1 (Version None)
Quarter: 2010Q2

REPORT INFORMATION
  Report Type: 
  Country: None (occurrence: None)
  Receive Date: 20100503
  Receipt Date: 20100427
  Transmission Date: 20101027
  Serious: Yes (Hospitalization, Other)
  Sender: FDA-Public Use
  Company Number: GR-BAYER-201023168GPV

PATIENT
  Age: 75 Year
  Sex: Male

DRUGS (3)
  1. CIPROXIN [Interacting]
     Indication: RESPIRATORY TRACT INFECTION
     Route: 042
     Dates: start: 20091130, end: 20091204
  2. MERONEM [Interacting]
     Indication: RESPIRATORY TRACT INFECTION
     Route: 042
     Dates: start: 20091204, end: 20091215
  3. ZOLOFT [Suspect]
     Indication: PSYCHOTIC DISORDER DUE TO A GENERAL MEDICAL CONDITION
     Dosage: TOTAL DAILY DOSE: 100 MG  UNIT DOSE: 100 MG
     Route: 048
     Dates: end: 20091224

REACTIONS (1)
  - SEROTONIN SYNDROME [None]
